FAERS Safety Report 8313380-1 (Version None)
Quarter: 2012Q2

REPORT INFORMATION
  Report Type: 
  Country: None (occurrence: None)
  Receive Date: 20120426
  Receipt Date: 20120422
  Transmission Date: 20120825
  Serious: Yes (Death)
  Sender: FDA-Public Use
  Company Number: PHEH2012US006431

PATIENT
  Sex: Male

DRUGS (2)
  1. HYDROXYUREA [Concomitant]
     Dosage: 500 MG, UNK
     Route: 048
  2. GLEEVEC [Suspect]
     Dosage: 400 MG, DAILY

REACTIONS (3)
  - NEOPLASM PROGRESSION [None]
  - DRUG INEFFECTIVE [None]
  - NEOPLASM MALIGNANT [None]
